FAERS Safety Report 7534918-8 (Version None)
Quarter: 2011Q2

REPORT INFORMATION
  Report Type: 
  Country: None (occurrence: None)
  Receive Date: 20110609
  Receipt Date: 20110602
  Transmission Date: 20111010
  Serious: Yes (Hospitalization, Other)
  Sender: FDA-Public Use
  Company Number: US-BIOGENIDEC-2010BI026801

PATIENT
  Age: 30 Year
  Sex: Female

DRUGS (1)
  1. AVONEX [Suspect]
     Indication: MULTIPLE SCLEROSIS
     Route: 030
     Dates: start: 20100515

REACTIONS (9)
  - THROMBOSIS [None]
  - SEPSIS [None]
  - TOOTH FRACTURE [None]
  - CONVULSION [None]
  - BACK PAIN [None]
  - ABDOMINAL PAIN [None]
  - RASH [None]
  - ENDOCARDITIS [None]
  - TOOTH INFECTION [None]
